FAERS Safety Report 11075715 (Version 2)
Quarter: 2015Q2

REPORT INFORMATION
  Report Type: Report from Study
  Country: US (occurrence: US)
  Receive Date: 20150429
  Receipt Date: 20150610
  Transmission Date: 20150821
  Serious: Yes (Other)
  Sender: FDA-Public Use
  Company Number: PHEH2015US007631

PATIENT
  Sex: Male

DRUGS (1)
  1. EXTAVIA [Suspect]
     Active Substance: INTERFERON BETA-1B
     Indication: MULTIPLE SCLEROSIS
     Dosage: 0.25 MG, QOD, (1 ML)
     Route: 058
     Dates: start: 2011

REACTIONS (4)
  - Laceration [Unknown]
  - Multiple fractures [Unknown]
  - Road traffic accident [Unknown]
  - Fall [Unknown]
